APPROVED DRUG PRODUCT: LORAZEPAM
Active Ingredient: LORAZEPAM
Strength: 1MG
Dosage Form/Route: TABLET;ORAL
Application: A070676 | Product #001
Applicant: PAR PHARMACEUTICAL INC
Approved: Dec 1, 1986 | RLD: No | RS: No | Type: DISCN